FAERS Safety Report 6863199-3 (Version None)
Quarter: 2010Q2

REPORT INFORMATION
  Report Type: 
  Country: None (occurrence: None)
  Receive Date: 20100528
  Receipt Date: 20100225
  Transmission Date: 20101027
  Serious: No
  Sender: FDA-Public Use
  Company Number: 007775

PATIENT
  Age: 13 Year
  Sex: Female

DRUGS (1)
  1. LACOSAMIDE [Suspect]
     Dosage: TAKEN 3 TABLETS OF 50MG STRENGTH BID

REACTIONS (3)
  - DECREASED APPETITE [None]
  - NAUSEA [None]
  - VOMITING [None]
